FAERS Safety Report 7183495-2 (Version None)
Quarter: 2010Q4

REPORT INFORMATION
  Report Type: 
  Country: None (occurrence: None)
  Receive Date: 20101222
  Receipt Date: 20101208
  Transmission Date: 20110411
  Serious: Yes (Other)
  Sender: FDA-Public Use
  Company Number: PHHY2010GR83802

PATIENT
  Age: 31 Year
  Sex: Female
  Weight: 46 kg

DRUGS (6)
  1. ZOLEDRONIC ACID [Suspect]
     Indication: OSTEITIS DEFORMANS
     Dosage: 3.5 MG
     Dates: start: 20071031
  2. ZOLEDRONIC ACID [Suspect]
     Dosage: 5 MG
  3. CALCITONIN [Concomitant]
     Dosage: UNK
     Dates: start: 19830101, end: 19930101
  4. ETIDRONIC ACID [Concomitant]
     Dosage: UNK
     Dates: start: 20010101, end: 20020601
  5. RISEDRONIC ACID [Concomitant]
     Dosage: UNK
     Dates: start: 20021201, end: 20030301
  6. RISEDRONIC ACID [Concomitant]
     Dosage: UNK
     Dates: start: 20040401, end: 20040701

REACTIONS (2)
  - BLOOD PARATHYROID HORMONE INCREASED [None]
  - HYPOCALCAEMIA [None]
